FAERS Safety Report 9901231 (Version 3)
Quarter: 2014Q2

REPORT INFORMATION
  Report Type: Spontaneous
  Country: US (occurrence: US)
  Receive Date: 20140217
  Receipt Date: 20140502
  Transmission Date: 20141212
  Serious: Yes (Hospitalization, Other)
  Sender: FDA-Public Use
  Company Number: US-BAYER-2014-023496

PATIENT
  Age: 29 Year
  Sex: Female
  Weight: 74.83 kg

DRUGS (3)
  1. MIRENA [Suspect]
     Indication: CONTRACEPTION
     Dosage: 20 MCG/24HR, CONT
     Route: 015
     Dates: start: 20111027, end: 20130913
  2. LEXAPRO [Concomitant]
  3. BACTRIM [Concomitant]
     Indication: URINARY TRACT INFECTION

REACTIONS (10)
  - Embedded device [None]
  - Vaginal haemorrhage [None]
  - Dyspareunia [None]
  - Urinary incontinence [None]
  - Procedural pain [None]
  - Device issue [None]
  - Pelvic pain [None]
  - Injury [None]
  - Emotional distress [None]
  - Abdominal pain lower [None]
